FAERS Safety Report 9121382 (Version 2)
Quarter: 2013Q2

REPORT INFORMATION
  Report Type: Spontaneous
  Country: US (occurrence: US)
  Receive Date: 20130225
  Receipt Date: 20130429
  Transmission Date: 20140414
  Serious: Yes (Other)
  Sender: FDA-Public Use
  Company Number: US-ROCHE-788435

PATIENT
  Age: 31 Year
  Sex: Female
  Weight: 58.57 kg

DRUGS (1)
  1. ACCUTANE [Suspect]
     Indication: ACNE
     Route: 065
     Dates: start: 199210, end: 199304

REACTIONS (15)
  - Crohn^s disease [Unknown]
  - Inflammatory bowel disease [Unknown]
  - Emotional distress [Unknown]
  - Colitis ulcerative [Unknown]
  - Depression [Unknown]
  - Rectal polyp [Unknown]
  - Irritable bowel syndrome [Unknown]
  - Vision blurred [Unknown]
  - Dizziness [Unknown]
  - Headache [Unknown]
  - Pain [Unknown]
  - Arthralgia [Unknown]
  - Lip dry [Unknown]
  - Rash [Unknown]
  - Blood triglycerides increased [Unknown]
